FAERS Safety Report 21143984 (Version 9)
Quarter: 2024Q4

REPORT INFORMATION
  Report Type: Spontaneous
  Country: CZ (occurrence: CZ)
  Receive Date: 20220728
  Receipt Date: 20241227
  Transmission Date: 20250115
  Serious: Yes (Death, Hospitalization, Other)
  Sender: NOVARTIS
  Company Number: CZ-NOVARTISPH-NVSC2022CZ170520

PATIENT
  Age: 56 Year
  Sex: Female

DRUGS (9)
  1. KYMRIAH [Suspect]
     Active Substance: TISAGENLECLEUCEL
     Indication: Diffuse large B-cell lymphoma
     Dosage: UNK UNK, ONCE/SINGLE
     Route: 042
     Dates: start: 202105
  2. VANCOMYCIN [Suspect]
     Active Substance: VANCOMYCIN
     Indication: Enterocolitis
     Dosage: UNK
     Route: 065
  3. AMIODARONE [Suspect]
     Active Substance: AMIODARONE
     Indication: Atrial fibrillation
     Dosage: UNK
     Route: 065
  4. CYCLOSPORINE [Suspect]
     Active Substance: CYCLOSPORINE
     Indication: Immunosuppression
     Dosage: UNK
     Route: 065
  5. FIDAXOMICIN [Concomitant]
     Active Substance: FIDAXOMICIN
     Indication: Clostridium difficile colitis
     Dosage: UNK
     Route: 065
  6. MEROPENEM [Concomitant]
     Active Substance: MEROPENEM
     Indication: Enterocolitis
     Dosage: UNK
     Route: 065
  7. METRONIDAZOLE [Concomitant]
     Active Substance: METRONIDAZOLE
     Indication: Enterocolitis
     Dosage: UNK
     Route: 065
  8. ANIDULAFUNGIN [Concomitant]
     Active Substance: ANIDULAFUNGIN
     Indication: Enterocolitis
     Dosage: UNK
     Route: 065
  9. PICOPREP [Concomitant]
     Active Substance: ANHYDROUS CITRIC ACID\MAGNESIUM OXIDE\SODIUM PICOSULFATE
     Indication: Product used for unknown indication
     Dosage: UNK
     Route: 065

REACTIONS (43)
  - Septic shock [Fatal]
  - Systemic infection [Not Recovered/Not Resolved]
  - Diarrhoea [Not Recovered/Not Resolved]
  - Renal failure [Unknown]
  - Hepatic infection [Unknown]
  - Bronchial obstruction [Unknown]
  - Pupil fixed [Unknown]
  - Diffuse large B-cell lymphoma refractory [Unknown]
  - Graft versus host disease in liver [Unknown]
  - Mobility decreased [Recovered/Resolved]
  - Hypovolaemia [Unknown]
  - Metabolic acidosis [Unknown]
  - Pulmonary congestion [Unknown]
  - Fluid balance positive [Unknown]
  - Gastrointestinal disorder [Unknown]
  - Anuria [Unknown]
  - Pneumonia fungal [Not Recovered/Not Resolved]
  - Hyperkalaemia [Unknown]
  - Serum ferritin increased [Unknown]
  - Brain stem ischaemia [Unknown]
  - Dyspnoea at rest [Unknown]
  - Oxygen saturation decreased [Not Recovered/Not Resolved]
  - Hypokinesia [Unknown]
  - Disseminated intravascular coagulation [Recovered/Resolved]
  - Anaemia [Unknown]
  - Thrombocytopenia [Unknown]
  - Hypermagnesaemia [Recovered/Resolved]
  - Somnolence [Recovered/Resolved]
  - Cytomegalovirus viraemia [Unknown]
  - Atrial fibrillation [Unknown]
  - Cardiac arrest [Unknown]
  - Multiple organ dysfunction syndrome [Not Recovered/Not Resolved]
  - Diffuse large B-cell lymphoma [Unknown]
  - Productive cough [Unknown]
  - Left ventricular dysfunction [Unknown]
  - Clostridium difficile colitis [Unknown]
  - Malignant neoplasm progression [Unknown]
  - Gastrointestinal mucosal disorder [Unknown]
  - Bronchial disorder [Unknown]
  - Fatigue [Unknown]
  - Peripheral circulatory failure [Unknown]
  - Respiratory disorder [Unknown]
  - Drug ineffective [Unknown]

NARRATIVE: CASE EVENT DATE: 20220601
